FAERS Safety Report 8377730-2 (Version None)
Quarter: 2012Q2

REPORT INFORMATION
  Report Type: 
  Country: None (occurrence: None)
  Receive Date: 20120522
  Receipt Date: 20120511
  Transmission Date: 20120825
  Serious: Yes (Other)
  Sender: FDA-Public Use
  Company Number: FR-VIIV HEALTHCARE LIMITED-B0800699A

PATIENT
  Sex: Female

DRUGS (2)
  1. ABACAVIR SULFATE/LAMIVUDINE [Suspect]
     Indication: HIV INFECTION CDC CATEGORY A2
     Dosage: 1UNIT PER DAY
     Route: 048
     Dates: start: 20110824, end: 20111208
  2. VIRAMUNE [Concomitant]
     Indication: HIV INFECTION CDC CATEGORY A2
     Dosage: 1UNIT TWICE PER DAY
     Route: 048
     Dates: start: 20081117

REACTIONS (3)
  - DRUG RASH WITH EOSINOPHILIA AND SYSTEMIC SYMPTOMS [None]
  - MYALGIA [None]
  - FATIGUE [None]
